FAERS Safety Report 25313031 (Version 2)
Quarter: 2025Q4

REPORT INFORMATION
  Report Type: Spontaneous
  Country: CR (occurrence: CR)
  Receive Date: 20250514
  Receipt Date: 20251125
  Transmission Date: 20260117
  Serious: Yes (Other)
  Sender: ABBVIE
  Company Number: CR-ABBOTT-2025A-1398968

PATIENT
  Age: 14 Year
  Sex: Male

DRUGS (3)
  1. EPIVAL [Suspect]
     Active Substance: DIVALPROEX SODIUM
     Indication: Epilepsy
     Dosage: 3 TABLETS DURING THE DAY AND 3 TABLETS AT NIGHT
     Route: 048
  2. EPIVAL [Suspect]
     Active Substance: DIVALPROEX SODIUM
     Indication: Epilepsy
     Route: 048
  3. TOPIRAMATE [Concomitant]
     Active Substance: TOPIRAMATE
     Indication: Product used for unknown indication

REACTIONS (9)
  - Haematotoxicity [Unknown]
  - Neutropenia [Unknown]
  - Gait disturbance [Unknown]
  - Thrombocytopenia [Unknown]
  - Asthenia [Unknown]
  - Toxicity to various agents [Unknown]
  - Fatigue [Unknown]
  - Drug withdrawal syndrome [Unknown]
  - Gait disturbance [Unknown]
